FAERS Safety Report 11645389 (Version 2)
Quarter: 2015Q4

REPORT INFORMATION
  Report Type: Spontaneous
  Country: FI (occurrence: FI)
  Receive Date: 20151020
  Receipt Date: 20151105
  Transmission Date: 20160304
  Serious: Yes (Hospitalization, Other)
  Sender: FDA-Public Use
  Company Number: FI-ELI_LILLY_AND_COMPANY-FI201509006439

PATIENT
  Sex: Female

DRUGS (1)
  1. ALIMTA [Suspect]
     Active Substance: PEMETREXED DISODIUM
     Indication: THYMOMA
     Dosage: UNK, CYCLICAL
     Route: 042
     Dates: start: 20150817, end: 20150907

REACTIONS (9)
  - Oropharyngeal pain [Unknown]
  - Hypersensitivity [Unknown]
  - Pyrexia [Unknown]
  - Rash [Recovered/Resolved]
  - Off label use [Unknown]
  - Malignant neoplasm progression [Unknown]
  - Pneumonia [Unknown]
  - Lung disorder [Unknown]
  - Neutropenic infection [Unknown]
